FAERS Safety Report 7338807-3 (Version None)
Quarter: 2011Q1

REPORT INFORMATION
  Report Type: 
  Country: None (occurrence: None)
  Receive Date: 20110303
  Receipt Date: 20110303
  Transmission Date: 20110831
  Serious: Yes (Hospitalization)
  Sender: FDA-Public Use
  Company Number: None

PATIENT
  Age: 23 Year
  Sex: Male
  Weight: 71.1 kg

DRUGS (1)
  1. ALEFACEPT [Suspect]
     Indication: IMMUNOSUPPRESSION
     Dosage: 15MG WEEKLY SUBCUTANEOUS 15 MG MONTHLY SUBCUTANEOUSLY
     Route: 058
     Dates: start: 20101007, end: 20110203

REACTIONS (2)
  - PYREXIA [None]
  - NEUTROPENIA [None]
